FAERS Safety Report 7183519-2 (Version None)
Quarter: 2010Q4

REPORT INFORMATION
  Report Type: 
  Country: None (occurrence: None)
  Receive Date: 20101222
  Receipt Date: 20101213
  Transmission Date: 20110411
  Serious: Yes (Other)
  Sender: FDA-Public Use
  Company Number: PHHY2010US65016

PATIENT
  Sex: Male

DRUGS (2)
  1. EXTAVIA [Suspect]
     Indication: MULTIPLE SCLEROSIS
     Dosage: 0.25 MG, QOD
     Route: 058
     Dates: start: 20100502
  2. BETASERON [Concomitant]
     Dosage: UNK

REACTIONS (5)
  - ASTHENIA [None]
  - FATIGUE [None]
  - NASOPHARYNGITIS [None]
  - SINUSITIS [None]
  - WHITE BLOOD CELL COUNT INCREASED [None]
